FAERS Safety Report 15761413 (Version 19)
Quarter: 2020Q4

REPORT INFORMATION
  Report Type: Spontaneous
  Country: FR (occurrence: FR)
  Receive Date: 20181226
  Receipt Date: 20201120
  Transmission Date: 20210113
  Serious: Yes (Hospitalization, Disabling, Other)
  Sender: FDA-Public Use
  Company Number: FR-MYLANLABS-2018M1095407

PATIENT
  Age: 28 Year
  Sex: Female
  Weight: 60 kg

DRUGS (75)
  1. CYPROTERONE [Suspect]
     Active Substance: CYPROTERONE
     Dosage: (HALF TABLET/D FOR 21 DAYS PER MONTH)
     Route: 048
     Dates: start: 20161124
  2. CYPROTERONE [Suspect]
     Active Substance: CYPROTERONE
     Dosage: 0.5 DOSAGE FORM, QD
     Route: 048
     Dates: start: 20130816
  3. CYPROTERONE/ETHINYLESTRADIOL [Suspect]
     Active Substance: CYPROTERONE ACETATE\ETHINYL ESTRADIOL
     Dosage: 2 MG, CONT
     Route: 048
  4. CYPROTERONE/ETHINYLESTRADIOL [Suspect]
     Active Substance: CYPROTERONE ACETATE\ETHINYL ESTRADIOL
     Dosage: 2 MG, CONT
     Route: 048
     Dates: start: 1997
  5. CYPROTERONE/ETHINYLESTRADIOL [Suspect]
     Active Substance: CYPROTERONE ACETATE\ETHINYL ESTRADIOL
     Dosage: 2 MILLIGRAM (UNK, 2 MG)
     Dates: start: 20161124
  6. ANDROCUR [Suspect]
     Active Substance: CYPROTERONE ACETATE
     Dosage: 0.5 DF, QD
     Route: 048
     Dates: start: 20101221, end: 20110705
  7. OROMONE [Concomitant]
     Active Substance: ESTRADIOL
     Indication: CONTRACEPTION
     Dosage: UNK
     Route: 065
     Dates: start: 2008, end: 20170920
  8. OROMONE [Concomitant]
     Active Substance: ESTRADIOL
     Dosage: 2 UNK
     Dates: start: 2009
  9. OROMONE [Concomitant]
     Active Substance: ESTRADIOL
     Dosage: UNK
  10. CYPROTERONE [Suspect]
     Active Substance: CYPROTERONE
     Indication: ALOPECIA
     Dosage: 2.5 DOSAGE FORM, QD (HALF  TABLET/D FOR 21 DAYS PER MONTH)
     Dates: start: 2007
  11. CYPROTERONE [Suspect]
     Active Substance: CYPROTERONE
     Dosage: 0.5 DOSAGE FORM, QD (HALF  TABLET QD)
     Route: 048
     Dates: start: 2008
  12. CYPROTERONE [Suspect]
     Active Substance: CYPROTERONE
     Dosage: 0.5 DOSAGE FORM, QD
     Route: 048
  13. ANDROCUR [Suspect]
     Active Substance: CYPROTERONE ACETATE
     Indication: ALOPECIA
     Dosage: UNK
     Route: 065
     Dates: start: 2008, end: 20170920
  14. ANDROCUR [Suspect]
     Active Substance: CYPROTERONE ACETATE
     Dosage: 0.5 DF, QD
     Route: 048
     Dates: end: 20161124
  15. ANDROCUR [Suspect]
     Active Substance: CYPROTERONE ACETATE
     Dosage: 0.5 DF, QD
     Route: 048
     Dates: end: 20161124
  16. OROMONE [Concomitant]
     Active Substance: ESTRADIOL
     Dosage: UNK
  17. OROMONE [Concomitant]
     Active Substance: ESTRADIOL
     Dosage: UNK
  18. ESTRADIOL. [Suspect]
     Active Substance: ESTRADIOL
     Dosage: 2 MILLIGRAM
     Route: 065
     Dates: start: 2007
  19. CYPROTERONE [Suspect]
     Active Substance: CYPROTERONE
     Dosage: HALF  TABLETS /D FOR 21 DAYS PER MONTH
     Route: 048
     Dates: start: 2008
  20. CYPROTERONE [Suspect]
     Active Substance: CYPROTERONE
     Dosage: QD (HALF  TABLET FOR 1 DAYS PER MONTH)
     Dates: start: 20090705, end: 20100820
  21. CYPROTERONE [Suspect]
     Active Substance: CYPROTERONE
     Dosage: (HALF  TABLET/D FOR 21 DAYS PER MONTH)
     Route: 048
     Dates: start: 20170510, end: 20170920
  22. CYPROTERONE [Suspect]
     Active Substance: CYPROTERONE
     Dosage: HALF TABLET, QD FOR 21 DAYS PER MONTH
     Route: 048
     Dates: start: 20110705, end: 20110830
  23. CYPROTERONE [Suspect]
     Active Substance: CYPROTERONE
     Dosage: 0.5 DOSAGE FORM, QD
     Route: 048
     Dates: start: 20110830
  24. CYPROTERONE/ETHINYLESTRADIOL [Suspect]
     Active Substance: CYPROTERONE ACETATE\ETHINYL ESTRADIOL
     Dosage: HALF TABLET QD, 21 DAYS PER MONTH
     Route: 048
     Dates: start: 20130816
  25. ANDROCUR [Suspect]
     Active Substance: CYPROTERONE ACETATE
     Dosage: 0.5 DF, QD
     Route: 048
     Dates: end: 20130816
  26. ANDROCUR [Suspect]
     Active Substance: CYPROTERONE ACETATE
     Dosage: 0.5 DF, QD
     Route: 048
     Dates: start: 20130816, end: 20140818
  27. OROMONE [Concomitant]
     Active Substance: ESTRADIOL
     Dosage: UNK
     Dates: start: 201312
  28. OROMONE [Concomitant]
     Active Substance: ESTRADIOL
     Dosage: 2 MG, UNK
  29. OROMONE [Concomitant]
     Active Substance: ESTRADIOL
     Dosage: UNK
  30. ESTRADIOL. [Suspect]
     Active Substance: ESTRADIOL
     Dosage: UNK
     Route: 048
  31. CYPROTERONE [Suspect]
     Active Substance: CYPROTERONE
     Indication: ACNE
     Dosage: HALF TABLET QD FOR 21 DAYS PER MONTH)
     Route: 048
     Dates: start: 20070528, end: 2009
  32. CYPROTERONE [Suspect]
     Active Substance: CYPROTERONE
     Dosage: HALF TABLET QD FOR 21 DAYS PER MONTH
     Route: 048
     Dates: start: 20100715
  33. CYPROTERONE [Suspect]
     Active Substance: CYPROTERONE
     Dosage: 0.5 DOSAGE FORM, QD
     Route: 048
  34. CYPROTERONE [Suspect]
     Active Substance: CYPROTERONE
     Dosage: 0.5 DOSAGE FORM, QD
     Route: 048
  35. CYPROTERONE/ETHINYLESTRADIOL [Suspect]
     Active Substance: CYPROTERONE ACETATE\ETHINYL ESTRADIOL
     Indication: ACNE
     Dosage: HALF TABLET QD, 21 DAYS PER MONTH
     Route: 048
     Dates: start: 20110705, end: 20110830
  36. CYPROTERONE/ETHINYLESTRADIOL [Suspect]
     Active Substance: CYPROTERONE ACETATE\ETHINYL ESTRADIOL
     Dosage: HALF TABLET, QD, 21 DAYS PER MONTH
     Route: 048
     Dates: start: 20130816, end: 20140818
  37. CYPROTERONE/ETHINYLESTRADIOL [Suspect]
     Active Substance: CYPROTERONE ACETATE\ETHINYL ESTRADIOL
     Dosage: HALF  TABLET QD; FOR 21DAYS PER MONTH
     Route: 048
     Dates: start: 20140818, end: 20170510
  38. ANDROCUR [Suspect]
     Active Substance: CYPROTERONE ACETATE
     Dosage: 0.5 DF, QD
     Route: 048
     Dates: end: 20110830
  39. ESTRADIOL. [Suspect]
     Active Substance: ESTRADIOL
     Dosage: UNK
     Route: 065
     Dates: start: 200907
  40. ESTRADIOL. [Suspect]
     Active Substance: ESTRADIOL
     Dosage: 2 MILLIGRAM
     Route: 065
     Dates: start: 201312
  41. CYPROTERONE [Suspect]
     Active Substance: CYPROTERONE
     Dosage: (HALF TABLET/D FOR 21 DAYS PER MONTH)
     Route: 048
     Dates: start: 20130816, end: 20140818
  42. CYPROTERONE [Suspect]
     Active Substance: CYPROTERONE
     Dosage: (HALF TABLET/D FOR 21 DAYS PER MONTH)
     Route: 048
     Dates: start: 20140818, end: 20170510
  43. CYPROTERONE/ETHINYLESTRADIOL [Suspect]
     Active Substance: CYPROTERONE ACETATE\ETHINYL ESTRADIOL
     Dosage: HALF  TABLET/D FOR 21 DAYS PER MONTH
     Route: 048
     Dates: start: 20090705, end: 20100820
  44. CYPROTERONE/ETHINYLESTRADIOL [Suspect]
     Active Substance: CYPROTERONE ACETATE\ETHINYL ESTRADIOL
     Dosage: UNK
  45. ANDROCUR [Suspect]
     Active Substance: CYPROTERONE ACETATE
     Dosage: 0.5 DF, QD
     Route: 048
     Dates: start: 20140818, end: 20170510
  46. ANDROCUR [Suspect]
     Active Substance: CYPROTERONE ACETATE
     Dosage: 0.5 DF, QD
     Route: 048
     Dates: end: 20170517
  47. ANDROCUR [Suspect]
     Active Substance: CYPROTERONE ACETATE
     Dosage: 0.5 DF, QD
     Route: 048
     Dates: start: 20110705, end: 20110830
  48. OROMONE [Concomitant]
     Active Substance: ESTRADIOL
     Dosage: UNK
  49. ESTRADIOL. [Suspect]
     Active Substance: ESTRADIOL
     Indication: CONTRACEPTION
     Dosage: UNK
     Dates: start: 20070528, end: 2009
  50. CYPROTERONE [Suspect]
     Active Substance: CYPROTERONE
     Dosage: 0.5 DOSAGE FORM, QD
  51. CYPROTERONE/ETHINYLESTRADIOL [Suspect]
     Active Substance: CYPROTERONE ACETATE\ETHINYL ESTRADIOL
     Dosage: HALF  TABLET/D QD, 21 DAYS PER MONTH
     Route: 048
     Dates: start: 20110830, end: 20170510
  52. ANDROCUR [Suspect]
     Active Substance: CYPROTERONE ACETATE
     Dosage: 0.5 DF, QD
     Route: 048
     Dates: start: 20130816, end: 20140818
  53. OROMONE [Concomitant]
     Active Substance: ESTRADIOL
     Dosage: UNK
  54. ESTRADIOL. [Suspect]
     Active Substance: ESTRADIOL
     Dosage: 1 DF, QD
     Route: 048
     Dates: start: 20090705, end: 20170920
  55. ESTRADIOL. [Suspect]
     Active Substance: ESTRADIOL
     Dosage: 1 DOSAGE FORM(1 TABLET/D FOR 21 DAYS PER MONTH)
     Route: 048
  56. CYPROTERONE/ETHINYLESTRADIOL [Suspect]
     Active Substance: CYPROTERONE ACETATE\ETHINYL ESTRADIOL
     Dosage: HALF TABLET/D FOR 21 DAYS PER MONTH
     Route: 048
     Dates: start: 20070528, end: 2009
  57. CYPROTERONE/ETHINYLESTRADIOL [Suspect]
     Active Substance: CYPROTERONE ACETATE\ETHINYL ESTRADIOL
     Dosage: QD, 21 DAYS PER MONTH
     Route: 048
     Dates: start: 20051221, end: 20110705
  58. ANDROCUR [Suspect]
     Active Substance: CYPROTERONE ACETATE
     Dosage: 0.5 DF, QD
     Route: 048
     Dates: start: 20090705, end: 20190828
  59. ESTRADIOL. [Suspect]
     Active Substance: ESTRADIOL
     Dosage: 1 DF, QD
     Route: 048
     Dates: start: 2008, end: 20170920
  60. CYPROTERONE [Suspect]
     Active Substance: CYPROTERONE
     Dosage: HALF TABLETS QD FOR 21 DAYS PER MONTH
     Route: 048
     Dates: start: 20090705, end: 20100820
  61. CYPROTERONE [Suspect]
     Active Substance: CYPROTERONE
     Dosage: HALF TABLET QD FOR 21 DAYS PER MONTH
     Route: 048
     Dates: start: 20101221, end: 20110705
  62. CYPROTERONE [Suspect]
     Active Substance: CYPROTERONE
     Dosage: UNK
  63. CYPROTERONE/ETHINYLESTRADIOL [Suspect]
     Active Substance: CYPROTERONE ACETATE\ETHINYL ESTRADIOL
     Indication: ALOPECIA
     Dosage: 2 MG BEFORE 28-MAY-2007
     Route: 065
  64. CYPROTERONE/ETHINYLESTRADIOL [Suspect]
     Active Substance: CYPROTERONE ACETATE\ETHINYL ESTRADIOL
     Dosage: QD, 21 DAYS PER MONTH
     Route: 048
     Dates: start: 2009, end: 20100715
  65. CYPROTERONE/ETHINYLESTRADIOL [Suspect]
     Active Substance: CYPROTERONE ACETATE\ETHINYL ESTRADIOL
     Dosage: QD HALF  TABLET/D FOR 21 DAYS PER MONTH
     Route: 048
     Dates: start: 20130816, end: 20140818
  66. CYPROTERONE/ETHINYLESTRADIOL [Suspect]
     Active Substance: CYPROTERONE ACETATE\ETHINYL ESTRADIOL
     Dosage: HALF  TABLET/D FOR 21 DAYS PER MONTH
     Route: 048
     Dates: start: 20170510, end: 20170920
  67. ANDROCUR [Suspect]
     Active Substance: CYPROTERONE ACETATE
     Indication: ACNE
     Dosage: 0.5 DF, QD
     Route: 048
     Dates: start: 20170510, end: 20170920
  68. ANDROCUR [Suspect]
     Active Substance: CYPROTERONE ACETATE
     Dosage: 0.5 DF, QD
     Route: 048
  69. ANDROCUR [Suspect]
     Active Substance: CYPROTERONE ACETATE
     Dosage: 0.5 DF, QD
     Route: 048
     Dates: end: 20110830
  70. OROMONE [Concomitant]
     Active Substance: ESTRADIOL
     Dosage: 2 MILLIGRAM
     Dates: start: 2007
  71. OROMONE [Concomitant]
     Active Substance: ESTRADIOL
     Dosage: UNK
  72. OROMONE [Concomitant]
     Active Substance: ESTRADIOL
     Dosage: UNK
  73. OROMONE [Concomitant]
     Active Substance: ESTRADIOL
     Dosage: UNK
  74. OROMONE [Concomitant]
     Active Substance: ESTRADIOL
     Dosage: UNK
  75. OROMONE [Concomitant]
     Active Substance: ESTRADIOL
     Dosage: UNK

REACTIONS (46)
  - Paraesthesia [Not Recovered/Not Resolved]
  - Joint range of motion decreased [Recovered/Resolved with Sequelae]
  - Formication [Recovered/Resolved with Sequelae]
  - Peripheral sensory neuropathy [Unknown]
  - Neck pain [Unknown]
  - Hypoaesthesia [Unknown]
  - Intracranial mass [Unknown]
  - Discomfort [Unknown]
  - Weight increased [Not Recovered/Not Resolved]
  - Hemiparaesthesia [Not Recovered/Not Resolved]
  - Disorientation [Unknown]
  - Diplopia [Not Recovered/Not Resolved]
  - Fatigue [Not Recovered/Not Resolved]
  - Memory impairment [Unknown]
  - Speech disorder [Recovered/Resolved with Sequelae]
  - Product use in unapproved indication [Unknown]
  - Pain [Unknown]
  - Product dose omission issue [Unknown]
  - Eye haematoma [Unknown]
  - Balance disorder [Not Recovered/Not Resolved]
  - Mobility decreased [Recovered/Resolved with Sequelae]
  - Off label use [Unknown]
  - Intentional product misuse [Unknown]
  - Loss of personal independence in daily activities [Unknown]
  - Aphasia [Unknown]
  - Headache [Unknown]
  - Hemiplegia [Not Recovered/Not Resolved]
  - Cognitive disorder [Unknown]
  - Language disorder [Unknown]
  - Gait disturbance [Not Recovered/Not Resolved]
  - Nervous system disorder [Unknown]
  - Executive dysfunction [Recovered/Resolved with Sequelae]
  - Musculoskeletal disorder [Recovered/Resolved with Sequelae]
  - Facial paralysis [Not Recovered/Not Resolved]
  - Partial seizures [Unknown]
  - Dyskinesia [Unknown]
  - Muscular weakness [Not Recovered/Not Resolved]
  - Dysarthria [Not Recovered/Not Resolved]
  - Disturbance in attention [Unknown]
  - Asthenia [Recovered/Resolved with Sequelae]
  - Clumsiness [Unknown]
  - Coordination abnormal [Not Recovered/Not Resolved]
  - Meningioma [Not Recovered/Not Resolved]
  - Hemiparesis [Not Recovered/Not Resolved]
  - Brain herniation [Unknown]
  - Visual impairment [Unknown]

NARRATIVE: CASE EVENT DATE: 1997
